FAERS Safety Report 17679365 (Version 1)
Quarter: 2020Q2

REPORT INFORMATION
  Report Type: Spontaneous
  Country: US (occurrence: US)
  Receive Date: 20200416
  Receipt Date: 20200416
  Transmission Date: 20200714
  Serious: No
  Sender: FDA-Public Use
  Company Number: None

PATIENT
  Age: 60 Year
  Sex: Male
  Weight: 77.4 kg

DRUGS (12)
  1. LISINOPRIL. [Concomitant]
     Active Substance: LISINOPRIL
     Dates: end: 20200416
  2. DEXAMETHASONE. [Concomitant]
     Active Substance: DEXAMETHASONE
     Dates: end: 20200416
  3. TIZANIDINE. [Concomitant]
     Active Substance: TIZANIDINE
     Dates: end: 20200416
  4. ALBUTEROL. [Concomitant]
     Active Substance: ALBUTEROL
     Dates: end: 20200416
  5. BUDESONIDE FORMOTEROL [Concomitant]
     Active Substance: BUDESONIDE
     Dates: end: 20200416
  6. TEMOZOLOMIDE. [Suspect]
     Active Substance: TEMOZOLOMIDE
     Indication: BRAIN NEOPLASM MALIGNANT
     Route: 048
     Dates: start: 20200325, end: 20200416
  7. CRESTOR [Concomitant]
     Active Substance: ROSUVASTATIN CALCIUM
     Dates: end: 20200416
  8. HCTZ [Concomitant]
     Active Substance: HYDROCHLOROTHIAZIDE
     Dates: end: 20200416
  9. BACTRIM [Concomitant]
     Active Substance: SULFAMETHOXAZOLE\TRIMETHOPRIM
     Dates: end: 20200416
  10. METOPROLOL SUCCINATE. [Concomitant]
     Active Substance: METOPROLOL SUCCINATE
     Dates: end: 20200416
  11. HYDROMORPHONE [Concomitant]
     Active Substance: HYDROMORPHONE
     Dates: end: 20200416
  12. PROCHLORPERAZINE. [Concomitant]
     Active Substance: PROCHLORPERAZINE
     Dates: end: 20200416

REACTIONS (1)
  - Death [None]

NARRATIVE: CASE EVENT DATE: 20200416
